FAERS Safety Report 6430758-1 (Version None)
Quarter: 2009Q4

REPORT INFORMATION
  Report Type: 
  Country: None (occurrence: None)
  Receive Date: 20091103
  Receipt Date: 20091022
  Transmission Date: 20100525
  Serious: Yes (Other)
  Sender: FDA-Public Use
  Company Number: 230178J09BRA

PATIENT
  Age: 42 Year
  Sex: Female

DRUGS (5)
  1. REBIF [Suspect]
     Indication: RELAPSING-REMITTING MULTIPLE SCLEROSIS
     Dosage: 44 MCG, 3 IN 1 WEEKS
     Dates: start: 20091001
  2. MANTIDAN (AMANTADINE /00055901/) [Concomitant]
  3. GABAPENTIN (GAVAPENTIN) [Concomitant]
  4. CITALOPRAM (CITALOPRAM /00582601/) [Concomitant]
  5. BUPROPION HCL [Concomitant]

REACTIONS (3)
  - NEPHROCALCINOSIS [None]
  - THERAPEUTIC RESPONSE DECREASED [None]
  - URINARY TRACT INFECTION [None]
